FAERS Safety Report 7923456-6 (Version None)
Quarter: 2011Q4

REPORT INFORMATION
  Report Type: 
  Country: None (occurrence: None)
  Receive Date: 20111117
  Receipt Date: 20110203
  Transmission Date: 20120403
  Serious: No
  Sender: FDA-Public Use
  Company Number: US-AMGEN-USASP2011006629

PATIENT
  Age: 11 Year
  Sex: Male
  Weight: 63.5 kg

DRUGS (6)
  1. FOLIC ACID [Concomitant]
     Dosage: 1 G, UNK
  2. METHOTREXATE [Concomitant]
     Dosage: 2.5 MG, UNK
  3. MULTIVITAMIN                       /00097801/ [Concomitant]
  4. ENBREL [Suspect]
     Indication: PRODUCT USED FOR UNKNOWN INDICATION
     Dosage: 25 MG, QWK
     Route: 058
  5. NAPROSYN [Concomitant]
     Dosage: 250 MG, UNK
  6. ONDANSETRON [Concomitant]
     Dosage: 4 MG, UNK

REACTIONS (1)
  - ULCER [None]
